FAERS Safety Report 25733886 (Version 1)
Quarter: 2025Q3

REPORT INFORMATION
  Report Type: Spontaneous
  Country: JP (occurrence: JP)
  Receive Date: 20250828
  Receipt Date: 20250828
  Transmission Date: 20251021
  Serious: Yes (Other)
  Sender: AMGEN
  Company Number: JP-AMGEN-JPNSP2025166857

PATIENT

DRUGS (4)
  1. FILGRASTIM [Suspect]
     Active Substance: FILGRASTIM
     Indication: Cytopenia
     Route: 065
  2. FILGRASTIM [Suspect]
     Active Substance: FILGRASTIM
     Indication: Aplastic anaemia
  3. ELTROMBOPAG [Suspect]
     Active Substance: ELTROMBOPAG
     Indication: Product used for unknown indication
     Route: 065
  4. METHYLPREDNISOLONE [Concomitant]
     Active Substance: METHYLPREDNISOLONE
     Indication: Prophylaxis

REACTIONS (8)
  - Hyperbilirubinaemia [Unknown]
  - Myelofibrosis [Unknown]
  - Blood product transfusion dependent [Unknown]
  - Disease recurrence [Unknown]
  - Blood creatinine increased [Unknown]
  - Herpes zoster [Unknown]
  - Parotitis [Unknown]
  - Therapy non-responder [Unknown]
